FAERS Safety Report 6977266-7 (Version None)
Quarter: 2010Q3

REPORT INFORMATION
  Report Type: 
  Country: None (occurrence: None)
  Receive Date: 20100910
  Receipt Date: 20100901
  Transmission Date: 20110219
  Serious: Yes (Other)
  Sender: FDA-Public Use
  Company Number: GXBR2010US01524

PATIENT
  Sex: Female
  Weight: 76.19 kg

DRUGS (8)
  1. TACROLIMUS (NGX) [Suspect]
     Indication: TRANSPLANT
     Dosage: 3 MG, BID
     Route: 048
     Dates: start: 20100101
  2. TACROLIMUS (NGX) [Suspect]
     Dosage: 2 MG QAM, 1 MG QPM
     Route: 048
     Dates: end: 20100101
  3. NITROFURANTOIN CAPSULES USP (NGX) [Suspect]
     Indication: PROPHYLAXIS URINARY TRACT INFECTION
  4. PREDNISONE TABLETS USP (NGX) [Suspect]
     Indication: TRANSPLANT
     Dosage: 2.5 MG QD, TAPERED FROM 40MG QD DOWN TO 10MG QD
     Route: 048
  5. FAMOTIDINE TABLETS USP (NGX) [Suspect]
     Indication: DYSPEPSIA
  6. ASACOL [Suspect]
     Indication: COLITIS ULCERATIVE
  7. PRENATAL VITAMINS [Suspect]
  8. IRON [Suspect]
     Dosage: WHEN TOLERATED

REACTIONS (4)
  - DRUG EXPOSURE DURING PREGNANCY [None]
  - PRE-ECLAMPSIA [None]
  - PREMATURE BABY [None]
  - PREMATURE LABOUR [None]
